FAERS Safety Report 15207137 (Version 1)
Quarter: 2018Q3

REPORT INFORMATION
  Report Type: Spontaneous
  Country: FR (occurrence: FR)
  Receive Date: 20180727
  Receipt Date: 20180727
  Transmission Date: 20181010
  Serious: Yes (Hospitalization)
  Sender: FDA-Public Use
  Company Number: FR-TEVA-2018-FR-930255

PATIENT
  Age: 21 Year
  Sex: Female

DRUGS (1)
  1. LISINOPRIL ANHYDRE [Suspect]
     Active Substance: LISINOPRIL
     Indication: MIGRAINE
     Dosage: NP
     Route: 048
     Dates: start: 20140418, end: 20140421

REACTIONS (5)
  - Diarrhoea [Recovered/Resolved]
  - Ascites [Recovering/Resolving]
  - Abdominal pain [Recovered/Resolved]
  - Pyrexia [Recovered/Resolved]
  - Intestinal angioedema [Recovered/Resolved]

NARRATIVE: CASE EVENT DATE: 20140421
